FAERS Safety Report 6524772-5 (Version None)
Quarter: 2010Q1

REPORT INFORMATION
  Report Type: 
  Country: None (occurrence: None)
  Receive Date: 20100104
  Receipt Date: 20091221
  Transmission Date: 20100710
  Serious: Yes (Other)
  Sender: FDA-Public Use
  Company Number: JP-PFIZER INC-2009314378

PATIENT
  Age: 38 Year
  Sex: Female

DRUGS (3)
  1. CHAMPIX [Suspect]
     Dosage: 0.5 MG, 1X/DAY
     Dates: start: 20091209, end: 20091216
  2. MYSLEE [Concomitant]
     Dosage: UNK
     Route: 048
  3. LUVOX [Concomitant]
     Dosage: UNK
     Route: 048

REACTIONS (4)
  - FATIGUE [None]
  - MALAISE [None]
  - MENTAL DISORDER [None]
  - PAROSMIA [None]
